FAERS Safety Report 10594185 (Version 1)
Quarter: 2014Q4

REPORT INFORMATION
  Report Type: Spontaneous
  Country: US (occurrence: US)
  Receive Date: 20141119
  Receipt Date: 20141119
  Transmission Date: 20150529
  Serious: No
  Sender: FDA-Public Use
  Company Number: US-BANPHARM-20142625

PATIENT

DRUGS (1)
  1. ERGOCALCIFEROL CAPSULES 1.25 MG [Suspect]
     Active Substance: ERGOCALCIFEROL
     Route: 048

REACTIONS (1)
  - Dysphagia [Not Recovered/Not Resolved]
